FAERS Safety Report 5097059-8 (Version None)
Quarter: 2006Q3

REPORT INFORMATION
  Report Type: 
  Country: None (occurrence: None)
  Receive Date: 20060901
  Receipt Date: 20060815
  Transmission Date: 20061208
  Serious: Yes (Hospitalization)
  Sender: FDA-Public Use
  Company Number: US200608003311

PATIENT
  Sex: Male
  Weight: 81.2 kg

DRUGS (1)
  1. ZYPREXA [Suspect]
     Indication: ANXIETY
     Dosage: 10 MG
     Dates: start: 20030101

REACTIONS (7)
  - BRAIN NEOPLASM [None]
  - CEREBRAL HAEMORRHAGE [None]
  - CORONARY ARTERY BYPASS [None]
  - DIABETES MELLITUS [None]
  - PNEUMONIA [None]
  - PRESCRIBED OVERDOSE [None]
  - THROMBOSIS [None]
